FAERS Safety Report 18968691 (Version 1)
Quarter: 2021Q1

REPORT INFORMATION
  Report Type: Other
  Country: CA (occurrence: CA)
  Receive Date: 20210304
  Receipt Date: 20210304
  Transmission Date: 20210420
  Serious: Yes (Other)
  Sender: FDA-Public Use
  Company Number: CA-APOTEX-2021AP003875

PATIENT
  Sex: Male

DRUGS (1)
  1. ZOLEDRONIC ACID [Suspect]
     Active Substance: ZOLEDRONIC ACID
     Indication: PROSTATE CANCER METASTATIC
     Dosage: 4 MILLIGRAM
     Route: 042

REACTIONS (4)
  - Back pain [Unknown]
  - Inappropriate schedule of product administration [Unknown]
  - Osteonecrosis of jaw [Unknown]
  - Arthralgia [Unknown]
